FAERS Safety Report 18136799 (Version 2)
Quarter: 2020Q3

REPORT INFORMATION
  Report Type: Spontaneous
  Country: US (occurrence: US)
  Receive Date: 20200811
  Receipt Date: 20200817
  Transmission Date: 20201103
  Serious: No
  Sender: FDA-Public Use
  Company Number: US-PFIZER INC-2020305062

PATIENT
  Age: 59 Year
  Sex: Female
  Weight: 65 kg

DRUGS (1)
  1. ESTRADIOL. [Suspect]
     Active Substance: ESTRADIOL
     Indication: VAGINAL DISORDER
     Dosage: 0.5 MG, 2X/WEEK (1MG, INSERT 0.5 MG VAGINALLY TWICE A WEEK)
     Route: 067
     Dates: start: 2020

REACTIONS (1)
  - Drug ineffective [Unknown]
